FAERS Safety Report 19251980 (Version 2)
Quarter: 2021Q2

REPORT INFORMATION
  Report Type: Spontaneous
  Country: SE (occurrence: SE)
  Receive Date: 20210513
  Receipt Date: 20210528
  Transmission Date: 20210717
  Serious: Yes (Other)
  Sender: FDA-Public Use
  Company Number: SE-AMGEN-SWESP2021068002

PATIENT
  Sex: Male

DRUGS (5)
  1. ATORVASTATIN [Concomitant]
     Active Substance: ATORVASTATIN
     Dosage: 40 MILLIGRAM, QD
  2. WARFARIN [Concomitant]
     Active Substance: WARFARIN
  3. PREDNISOLONE. [Concomitant]
     Active Substance: PREDNISOLONE
     Indication: POLYMYALGIA RHEUMATICA
     Dosage: UNK
     Dates: start: 20210324
  4. CALCICHEW?D3 [Concomitant]
     Active Substance: CALCIUM\CHOLECALCIFEROL
     Dosage: 500 MILLIGRAM/ / 8001E
     Dates: start: 20210406, end: 20210513
  5. PROLIA [Suspect]
     Active Substance: DENOSUMAB
     Indication: POLYMYALGIA RHEUMATICA
     Dosage: 60 MILLIGRAM
     Route: 058
     Dates: start: 20210406

REACTIONS (7)
  - Paraesthesia [Not Recovered/Not Resolved]
  - Balance disorder [Unknown]
  - Blood parathyroid hormone increased [Not Recovered/Not Resolved]
  - Off label use [Unknown]
  - Myalgia [Not Recovered/Not Resolved]
  - Memory impairment [Unknown]
  - Neuropathy peripheral [Not Recovered/Not Resolved]

NARRATIVE: CASE EVENT DATE: 20210407
